FAERS Safety Report 13221657 (Version 1)
Quarter: 2017Q1

REPORT INFORMATION
  Report Type: Other
  Country: US (occurrence: US)
  Receive Date: 20170211
  Receipt Date: 20170211
  Transmission Date: 20170428
  Serious: Yes (Hospitalization)
  Sender: FDA-Public Use
  Company Number: US-ACORDA-ACO_131333_2016

PATIENT
  Age: 54 Year
  Sex: Female

DRUGS (1)
  1. AMPYRA [Suspect]
     Active Substance: DALFAMPRIDINE
     Indication: PRODUCT USED FOR UNKNOWN INDICATION
     Dosage: 10 MG, BID
     Route: 048
     Dates: start: 20150714

REACTIONS (8)
  - Multiple sclerosis relapse [Unknown]
  - Depression [Unknown]
  - Gait disturbance [Unknown]
  - Mobility decreased [Unknown]
  - Urinary retention [Unknown]
  - Urinary incontinence [Unknown]
  - Micturition urgency [Unknown]
  - Paraesthesia [Unknown]

NARRATIVE: CASE EVENT DATE: 201604
